FAERS Safety Report 13551756 (Version 1)
Quarter: 2017Q2

REPORT INFORMATION
  Report Type: Spontaneous
  Country: AU (occurrence: AU)
  Receive Date: 20170516
  Receipt Date: 20170516
  Transmission Date: 20170830
  Serious: Yes (Other)
  Sender: FDA-Public Use
  Company Number: AU-009507513-1705AUS007451

PATIENT
  Sex: Female

DRUGS (2)
  1. IMPLANON [Suspect]
     Active Substance: ETONOGESTREL
     Route: 059
  2. PROGESTERONE. [Suspect]
     Active Substance: PROGESTERONE
     Indication: METRORRHAGIA
     Route: 048

REACTIONS (1)
  - Mental impairment [Unknown]
